FAERS Safety Report 4542012-3 (Version None)
Quarter: 2004Q4

REPORT INFORMATION
  Report Type: 
  Country: None (occurrence: None)
  Receive Date: 20041227
  Receipt Date: 20041209
  Transmission Date: 20050328
  Serious: Yes (Hospitalization)
  Sender: FDA-Public Use
  Company Number: 034-0719-970002

PATIENT
  Age: 70 Year
  Sex: Female

DRUGS (3)
  1. GEMFIBROZIL [Suspect]
     Indication: LIPIDS INCREASED
     Dosage: 1200 MG (600 MG, TWICE A DAY), ORAL
     Route: 048
  2. DICLOFENAC SODIUM [Suspect]
     Indication: MYALGIA
     Dosage: 75 MG PER DAY, ORAL
     Route: 048
  3. ENALAPRIL (ENALAPRIL) [Concomitant]

REACTIONS (2)
  - RENAL FAILURE ACUTE [None]
  - RHABDOMYOLYSIS [None]
